FAERS Safety Report 18814085 (Version 1)
Quarter: 2021Q1

REPORT INFORMATION
  Report Type: Spontaneous
  Country: US (occurrence: US)
  Receive Date: 20210201
  Receipt Date: 20210201
  Transmission Date: 20210419
  Serious: No
  Sender: FDA-Public Use
  Company Number: US-GLAXOSMITHKLINE-US2021AMR018992

PATIENT
  Sex: Female

DRUGS (1)
  1. ZEJULA [Suspect]
     Active Substance: NIRAPARIB
     Indication: OVARIAN CANCER
     Dosage: 200 MG, QD
     Dates: start: 20201230

REACTIONS (9)
  - Influenza like illness [Unknown]
  - Therapy cessation [Unknown]
  - Palpitations [Unknown]
  - Pyrexia [Unknown]
  - Adverse drug reaction [Unknown]
  - Pain [Unknown]
  - Bedridden [Unknown]
  - Dyspnoea [Unknown]
  - Feeling of body temperature change [Unknown]
